FAERS Safety Report 13703038 (Version 3)
Quarter: 2017Q3

REPORT INFORMATION
  Report Type: Report from Study
  Country: US (occurrence: US)
  Receive Date: 20170629
  Receipt Date: 20170710
  Transmission Date: 20171127
  Serious: Yes (Other)
  Sender: FDA-Public Use
  Company Number: US-SAOL THERAPEUTICS-0700380519

PATIENT
  Age: 66 Year
  Sex: Female
  Weight: 52.61 kg

DRUGS (20)
  1. BUPIVACAINE. [Suspect]
     Active Substance: BUPIVACAINE
     Dosage: 21.694 MG, \DAY
     Route: 037
     Dates: start: 20130717
  2. COMPOUNDED BACLOFEN [Suspect]
     Active Substance: BACLOFEN
     Indication: PAIN
     Dosage: 80.11 ?G, \DAY
     Route: 037
     Dates: start: 20130717
  3. DILAUDID [Suspect]
     Active Substance: HYDROMORPHONE HYDROCHLORIDE
     Dosage: 1.602 MG, \DAY
     Route: 037
     Dates: start: 20130717
  4. BUPIVACAINE. [Suspect]
     Active Substance: BUPIVACAINE
     Dosage: 22.390 MG, \DAY
     Route: 037
     Dates: start: 20160208
  5. BUPIVACAINE. [Suspect]
     Active Substance: BUPIVACAINE
     Dosage: 35.475 MG, \DAY
     Route: 037
     Dates: start: 20160208
  6. CLONIDINE. [Suspect]
     Active Substance: CLONIDINE
     Dosage: 306.44 ?G, \DAY
     Route: 037
     Dates: start: 20160208, end: 20160208
  7. COMPOUNDED BACLOFEN [Suspect]
     Active Substance: BACLOFEN
     Dosage: 108.47 ?G, \DAY
     Route: 037
     Dates: start: 20130717
  8. CLONIDINE. [Suspect]
     Active Substance: CLONIDINE
     Dosage: 80.11 ?G, \DAY
     Route: 037
     Dates: start: 20130717
  9. CLONIDINE. [Suspect]
     Active Substance: CLONIDINE
     Dosage: 108.47 ?G, \DAY
     Route: 037
     Dates: start: 20130717
  10. BUPIVACAINE. [Suspect]
     Active Substance: BUPIVACAINE
     Dosage: 36.773 MG, \DAY
     Route: 037
     Dates: start: 20160208, end: 20160208
  11. COMPOUNDED BACLOFEN [Suspect]
     Active Substance: BACLOFEN
     Indication: PAIN
     Dosage: 186.58 ?G, \DAY
     Route: 037
     Dates: start: 20160208
  12. COMPOUNDED BACLOFEN [Suspect]
     Active Substance: BACLOFEN
     Dosage: 306.44 ?G, \DAY
     Route: 037
     Dates: start: 20160208, end: 20160208
  13. DILAUDID [Suspect]
     Active Substance: HYDROMORPHONE HYDROCHLORIDE
     Dosage: 2.169 MG, \DAY
     Route: 037
     Dates: start: 20130717
  14. COMPOUNDED BACLOFEN [Suspect]
     Active Substance: BACLOFEN
     Dosage: 295.62 ?G, \DAY
     Route: 037
     Dates: start: 20160208
  15. DILAUDID [Suspect]
     Active Substance: HYDROMORPHONE HYDROCHLORIDE
     Dosage: 5.516 MG, \DAY
     Route: 037
     Dates: start: 20160208, end: 20160208
  16. DILAUDID [Suspect]
     Active Substance: HYDROMORPHONE HYDROCHLORIDE
     Dosage: 5.321 MG, \DAY
     Route: 037
     Dates: start: 20160208
  17. CLONIDINE. [Suspect]
     Active Substance: CLONIDINE
     Dosage: 295.62 ?G, \DAY
     Route: 037
     Dates: start: 20160208
  18. BUPIVACAINE. [Suspect]
     Active Substance: BUPIVACAINE
     Dosage: 16.022 MG, \DAY
     Route: 037
     Dates: start: 20130717
  19. DILAUDID [Suspect]
     Active Substance: HYDROMORPHONE HYDROCHLORIDE
     Dosage: 3.358 MG, \DAY
     Route: 037
     Dates: start: 20160208
  20. CLONIDINE. [Suspect]
     Active Substance: CLONIDINE
     Dosage: 186.58 ?G, \DAY
     Route: 037
     Dates: start: 20160208

REACTIONS (6)
  - Incision site haemorrhage [Recovered/Resolved]
  - Implant site haematoma [Recovered/Resolved]
  - Off label use [Unknown]
  - Implant site extravasation [Recovered/Resolved]
  - Wound dehiscence [Recovered/Resolved]
  - Dizziness [Recovered/Resolved]

NARRATIVE: CASE EVENT DATE: 20130805
